FAERS Safety Report 8806492 (Version 2)
Quarter: 2012Q4

REPORT INFORMATION
  Report Type: 
  Country: JP (occurrence: JP)
  Receive Date: 20120925
  Receipt Date: 20121005
  Transmission Date: 20130627
  Serious: Yes (Other)
  Sender: FDA-Public Use
  Company Number: JP-RANBAXY-2012RR-60468

PATIENT
  Age: 34 Year
  Sex: Male

DRUGS (11)
  1. RISPERIDONE [Suspect]
     Indication: BIPOLAR DISORDER
     Dosage: 6 mg/day
     Route: 065
  2. RISPERIDONE [Suspect]
     Indication: BIPOLAR DISORDER
     Dosage: 6 mg/day
     Route: 065
     Dates: start: 2010
  3. HALOPERIDOL [Suspect]
     Indication: BIPOLAR DISORDER
     Dosage: UNK
     Route: 065
  4. HALOPERIDOL [Suspect]
     Indication: BIPOLAR DISORDER
     Dosage: 9 mg/day
     Route: 065
     Dates: end: 1997
  5. LITHIUM [Suspect]
     Indication: BIPOLAR DISORDER
     Dosage: 1000 mg/day
     Route: 065
     Dates: end: 201008
  6. ARIPIPRAZOLE [Concomitant]
     Indication: BIPOLAR DISORDER
     Dosage: 24 mg/day
     Route: 065
  7. ARIPIPRAZOLE [Concomitant]
     Indication: BIPOLAR DISORDER
     Dosage: 30 mg/day the next day
     Route: 065
  8. VALPROIC ACID [Concomitant]
     Indication: BIPOLAR DISORDER
     Dosage: 1600 mg/day
     Route: 065
  9. RISPERIDONE [Concomitant]
     Indication: BIPOLAR DISORDER
     Dosage: 4 mg/day
     Route: 065
  10. VALPROIC ACID [Concomitant]
     Indication: BIPOLAR DISORDER
     Dosage: up to 800 mg/day
     Route: 065
     Dates: start: 2010
  11. ARIPIPRAZOLE [Concomitant]
     Indication: BIPOLAR DISORDER
     Dosage: 24 mg/day
     Route: 065

REACTIONS (2)
  - Dystonia [Recovering/Resolving]
  - Renal failure [Unknown]
